FAERS Safety Report 5337758-3 (Version None)
Quarter: 2007Q2

REPORT INFORMATION
  Report Type: 
  Country: None (occurrence: None)
  Receive Date: 20070308
  Receipt Date: 20061220
  Transmission Date: 20071010
  Serious: No
  Sender: FDA-Public Use
  Company Number: 2006-BP-14875BP

PATIENT
  Sex: Male

DRUGS (5)
  1. SPIRIVA [Suspect]
     Indication: ASBESTOSIS
     Dosage: 18 MCG (18 MCG, 1 IN 1 D), IH
     Route: 055
     Dates: start: 20060301
  2. AZMACORT [Suspect]
     Indication: ASBESTOSIS
     Dosage: 12 PUF (4 PUFFS THREE TIMES DAILY)
  3. LIPITOR(ATORVASTAIN CALCIUM) [Concomitant]
  4. ASPIRIN [Concomitant]
  5. AVALIDE(KARVEA HCT) [Concomitant]

REACTIONS (2)
  - EYE DISORDER [None]
  - SNEEZING [None]
